FAERS Safety Report 5026284-7 (Version None)
Quarter: 2006Q2

REPORT INFORMATION
  Report Type: 
  Country: None (occurrence: None)
  Receive Date: 20060615
  Receipt Date: 20060606
  Transmission Date: 20061013
  Serious: Yes (Death, Other)
  Sender: FDA-Public Use
  Company Number: PHBS2006BE08340

PATIENT
  Age: 78 Year
  Sex: Female

DRUGS (1)
  1. AREDIA [Suspect]
     Indication: BREAST CANCER
     Route: 065
     Dates: start: 20030601

REACTIONS (3)
  - DEATH [None]
  - OSTEONECROSIS [None]
  - TOOTH ABSCESS [None]
